FAERS Safety Report 4558384-X (Version None)
Quarter: 2005Q1

REPORT INFORMATION
  Report Type: 
  Country: None (occurrence: None)
  Receive Date: 20050121
  Receipt Date: 20041224
  Transmission Date: 20050727
  Serious: Yes (Life-Threatening, Hospitalization)
  Sender: FDA-Public Use
  Company Number: JP-MERCK-0412USA03153

PATIENT
  Age: 73 Year
  Sex: Female
  Weight: 46 kg

DRUGS (9)
  1. COZAAR [Suspect]
     Indication: HYPERTENSION
     Route: 048
  2. LORELCO [Suspect]
     Indication: HYPERLIPIDAEMIA
     Route: 048
  3. EPADEL [Suspect]
     Indication: ATHEROSCLEROSIS OBLITERANS
     Route: 048
     Dates: start: 20040801, end: 20041201
  4. ANPLAG [Suspect]
     Indication: ATHEROSCLEROSIS OBLITERANS
     Route: 048
     Dates: start: 20040801, end: 20041201
  5. LASIX [Concomitant]
     Indication: HYPERTENSION
     Route: 048
  6. NORVASC [Concomitant]
     Indication: HYPERTENSION
     Route: 048
  7. VASOTEC [Concomitant]
     Indication: HYPERTENSION
     Route: 048
  8. BROTIZOLAM [Concomitant]
     Indication: INSOMNIA
     Route: 048
  9. THYRADIN [Concomitant]
     Indication: AUTOIMMUNE THYROIDITIS
     Route: 048

REACTIONS (3)
  - ASCITES [None]
  - HEPATIC FUNCTION ABNORMAL [None]
  - JAUNDICE [None]
